FAERS Safety Report 5363631-0 (Version None)
Quarter: 2007Q2

REPORT INFORMATION
  Report Type: 
  Country: None (occurrence: None)
  Receive Date: 20070618
  Receipt Date: 20070618
  Transmission Date: 20071010
  Serious: Yes (Hospitalization)
  Sender: FDA-Public Use
  Company Number: None

PATIENT
  Sex: Female
  Weight: 55.6 kg

DRUGS (4)
  1. BEVACIZUMAB (RHUMAB VEGF) [Suspect]
     Dosage: 304 MG
  2. LEUCOVORIN CALCIUM [Suspect]
     Dosage: 670 MG
  3. ELOXATIN [Suspect]
     Dosage: 109 MG
  4. FLUOROURACIL [Suspect]
     Dosage: 501 MG

REACTIONS (2)
  - PELVIC VENOUS THROMBOSIS [None]
  - THROMBOSIS [None]
